FAERS Safety Report 13958919 (Version 1)
Quarter: 2017Q3

REPORT INFORMATION
  Report Type: Spontaneous
  Country: US (occurrence: US)
  Receive Date: 20170911
  Receipt Date: 20170911
  Transmission Date: 20171128
  Serious: Yes (Disabling)
  Sender: FDA-Public Use
  Company Number: None

PATIENT
  Sex: Male
  Weight: 74.25 kg

DRUGS (3)
  1. LEVOTHYROXINE 125 MCG TABLET [Suspect]
     Active Substance: LEVOTHYROXINE
     Indication: HORMONE REPLACEMENT THERAPY
     Dosage: ?          OTHER STRENGTH:MCG;QUANTITY:1 TABLET(S);?
     Route: 048
     Dates: start: 20170731, end: 20170911
  2. VITAMIN D [Concomitant]
     Active Substance: CHOLECALCIFEROL
  3. LEVOTHYROXINE 125 MCG TABLET [Suspect]
     Active Substance: LEVOTHYROXINE
     Indication: THYROID CANCER
     Dosage: ?          OTHER STRENGTH:MCG;QUANTITY:1 TABLET(S);?
     Route: 048
     Dates: start: 20170731, end: 20170911

REACTIONS (8)
  - Blood test abnormal [None]
  - Manufacturing materials issue [None]
  - Fatigue [None]
  - Bone pain [None]
  - Asthenia [None]
  - Drug ineffective [None]
  - Product counterfeit [None]
  - Product quality issue [None]

NARRATIVE: CASE EVENT DATE: 20170911
